FAERS Safety Report 7870733 (Version 2)
Quarter: 2013Q2

REPORT INFORMATION
  Report Type: Spontaneous
  Country: GB (occurrence: GB)
  Receive Date: 20110325
  Receipt Date: 20130403
  Transmission Date: 20140414
  Serious: Yes (Hospitalization)
  Sender: FDA-Public Use
  Company Number: GB-RANBAXY-2011R1-41975

PATIENT
  Age: 68 Year
  Sex: Female
  Weight: 50.8 kg

DRUGS (1)
  1. ACETAMINOPHEN [Suspect]
     Indication: PRODUCT USED FOR UNKNOWN INDICATION
     Dosage: UNK
     Route: 065

REACTIONS (6)
  - Overdose [Recovering/Resolving]
  - Myocardial infarction [Recovering/Resolving]
  - Hypotension [Recovering/Resolving]
  - Ventricular asystole [Recovering/Resolving]
  - Electrocardiogram ST segment elevation [Recovered/Resolved]
  - Hypokinesia [Recovering/Resolving]
